FAERS Safety Report 8865628 (Version 1)
Quarter: 2012Q4

REPORT INFORMATION
  Report Type: 
  Country: US (occurrence: US)
  Receive Date: 20121024
  Receipt Date: 20121024
  Transmission Date: 20130627
  Serious: No
  Sender: FDA-Public Use
  Company Number: US-AMGEN-USASP2012003976

PATIENT
  Age: 77 Year
  Sex: Male
  Weight: 91.61 kg

DRUGS (11)
  1. ENBREL [Suspect]
     Indication: PRODUCT USED FOR UNKNOWN INDICATION
     Dosage: 50 mg, qwk
     Route: 058
  2. METHOTREXATE [Concomitant]
     Dosage: UNK
  3. FOLIC ACID [Concomitant]
     Dosage: 1 mg, UNK
  4. PRILOSEC                           /00661201/ [Concomitant]
     Dosage: 10 mg, UNK
  5. LIPITOR [Concomitant]
     Dosage: 10 mg, UNK
  6. INDERAL [Concomitant]
     Dosage: 80 mg, UNK
  7. NORVASC [Concomitant]
     Dosage: 5 mg, UNK
  8. DIOVAN [Concomitant]
     Dosage: 160 mg, UNK
  9. FLOMAX                             /00889901/ [Concomitant]
     Dosage: 0.4 mg, UNK
  10. ALEVE [Concomitant]
     Dosage: UNK
  11. FISH OIL [Concomitant]
     Dosage: UNK

REACTIONS (1)
  - Viral infection [Unknown]
